FAERS Safety Report 6263769-X (Version None)
Quarter: 2009Q3

REPORT INFORMATION
  Report Type: 
  Country: None (occurrence: None)
  Receive Date: 20090710
  Receipt Date: 20090630
  Transmission Date: 20100115
  Serious: Yes (Hospitalization)
  Sender: FDA-Public Use
  Company Number: PHHY2009CA04567

PATIENT
  Sex: Male

DRUGS (10)
  1. EXJADE [Suspect]
     Indication: MYELODYSPLASTIC SYNDROME
     Dosage: 1750 MG, UNK
     Route: 048
  2. EXJADE [Suspect]
     Indication: IRON OVERLOAD
  3. METOPROLOL [Concomitant]
     Dosage: 100 MG, QD
     Route: 048
  4. RAMIPRIL [Concomitant]
     Dosage: 5 MG, QD
     Route: 048
  5. NORVASK [Concomitant]
     Dosage: 5 MG, QD
     Route: 048
  6. DOXAZOSIN MESILATE [Concomitant]
     Dosage: 2 MG, QD
     Route: 048
  7. ZOCOR [Concomitant]
     Dosage: 20 MG, QD
     Route: 048
  8. FUROSEMIDE [Concomitant]
     Dosage: 40 MG, TID
     Route: 048
  9. NITROGLYCERIN [Concomitant]
     Dosage: 0.8
  10. ACE INHIBITORS AND DIURETICS [Concomitant]

REACTIONS (3)
  - CARDIAC FAILURE CHRONIC [None]
  - OEDEMA [None]
  - RENAL FAILURE [None]
